FAERS Safety Report 7678933-2 (Version None)
Quarter: 2011Q3

REPORT INFORMATION
  Report Type: 
  Country: None (occurrence: None)
  Receive Date: 20110812
  Receipt Date: 20110803
  Transmission Date: 20111222
  Serious: No
  Sender: FDA-Public Use
  Company Number: US-BIOGENIDEC-2011BI020300

PATIENT
  Age: 60 Year
  Sex: Female

DRUGS (1)
  1. TYSABRI [Suspect]
     Indication: MULTIPLE SCLEROSIS
     Route: 042
     Dates: start: 20110422

REACTIONS (7)
  - BALANCE DISORDER [None]
  - CONTUSION [None]
  - LIMB INJURY [None]
  - PAIN IN EXTREMITY [None]
  - FALL [None]
  - FATIGUE [None]
  - LACERATION [None]
